FAERS Safety Report 10385272 (Version 1)
Quarter: 2014Q3

REPORT INFORMATION
  Report Type: Spontaneous
  Country: US (occurrence: None)
  Receive Date: 20140813
  Receipt Date: 20140813
  Transmission Date: 20150326
  Serious: Yes (Disabling)
  Sender: FDA-Public Use
  Company Number: None

PATIENT
  Age: 25 Year
  Sex: Male
  Weight: 108.86 kg

DRUGS (1)
  1. CIPROFLOXACIN. [Suspect]
     Active Substance: CIPROFLOXACIN
     Indication: SINUSITIS
     Dosage: 1 PILL TWICE DAILY TAKEN BY MOUTH
     Route: 048
     Dates: start: 20140401, end: 20140415

REACTIONS (7)
  - Peripheral coldness [None]
  - Muscle twitching [None]
  - Tongue disorder [None]
  - Muscle atrophy [None]
  - Feeling cold [None]
  - Crepitations [None]
  - Fatigue [None]

NARRATIVE: CASE EVENT DATE: 20140401
